FAERS Safety Report 9386124 (Version 1)
Quarter: 2013Q3

REPORT INFORMATION
  Report Type: Spontaneous
  Country: None (occurrence: US)
  Receive Date: 20130707
  Receipt Date: 20130707
  Transmission Date: 20140515
  Serious: No
  Sender: FDA-Public Use
  Company Number: US-ALLERGAN-1304379US

PATIENT
  Age: 82 Year
  Sex: Female

DRUGS (9)
  1. LUMIGAN? 0.01% [Suspect]
     Indication: GLAUCOMA
     Dosage: 2 GTT, QHS
     Route: 047
     Dates: start: 201303
  2. LUMIGAN? 0.01% [Suspect]
     Dosage: 1 GTT, QHS
     Route: 047
     Dates: start: 201301
  3. PLAVIX                             /01220701/ [Concomitant]
     Indication: ATRIAL FIBRILLATION
     Dosage: 75 MG, QD
     Route: 048
  4. DIGOXIN [Concomitant]
     Indication: ATRIAL FIBRILLATION
     Dosage: 0.25 MG, QD
     Route: 048
  5. DILTIAZEM [Concomitant]
     Indication: ATRIAL FIBRILLATION
     Dosage: 120 MG, BID
     Route: 048
  6. LISINOPRIL [Concomitant]
     Indication: HYPERTENSION
     Dosage: 20 MG, QD
     Route: 048
  7. CITALOPRAM [Concomitant]
     Indication: ANXIETY
     Dosage: 5 MG, QD
     Route: 048
  8. ASA [Concomitant]
     Indication: PRODUCT USED FOR UNKNOWN INDICATION
     Dosage: 325 MG, QD
     Route: 048
  9. REFRESH TEARS [Concomitant]
     Indication: DRY EYE
     Dosage: UNK
     Route: 047

REACTIONS (4)
  - Aphthous stomatitis [Unknown]
  - Tongue discolouration [Unknown]
  - Oral pain [Recovering/Resolving]
  - Eye irritation [Recovered/Resolved]
